FAERS Safety Report 9525766 (Version 1)
Quarter: 2013Q1

REPORT INFORMATION
  Report Type: Spontaneous
  Country: PR (occurrence: None)
  Receive Date: 20130314
  Receipt Date: 20130314
  Transmission Date: 20140127
  Serious: Yes (Other)
  Sender: FDA-Public Use
  Company Number: 1212USA011284

PATIENT
  Age: 56 Year
  Sex: Male

DRUGS (4)
  1. PEGINTRON [Suspect]
     Indication: HEPATITIS C
     Dosage: QW, 3 CAPSULES IN THE MORNING AND 2 CAPSULES IN THE EVEINING , SC
     Route: 058
     Dates: start: 20120916, end: 201211
  2. REBETOL (RIBAVIRIN) CAPSULE [Suspect]
     Dosage: 5 DF, QW, 3CAPSULES IN THE MORNING AND 2 CAPSULES IN THE EVENING, ORAL
     Route: 048
     Dates: start: 20120916
  3. VICTRELIS [Suspect]
     Route: 048
     Dates: start: 20121014
  4. PROPRANOLOL HYDROCHLORIDE (PROPRANOLOL HYDROCHLORIDE) [Concomitant]

REACTIONS (3)
  - Feeling hot [None]
  - T-cell depletion [None]
  - Viral load increased [None]
